FAERS Safety Report 7437666-8 (Version None)
Quarter: 2011Q2

REPORT INFORMATION
  Report Type: 
  Country: None (occurrence: None)
  Receive Date: 20110426
  Receipt Date: 20110421
  Transmission Date: 20111010
  Serious: Yes (Death)
  Sender: FDA-Public Use
  Company Number: JP-ROCHE-767872

PATIENT
  Age: 77 Year
  Sex: Female
  Weight: 57 kg

DRUGS (13)
  1. OXYCONTIN [Concomitant]
     Dosage: DOSE FORM:PERORAL AGENT
     Route: 048
  2. CALCIUM LEVOFOLINATE [Suspect]
     Route: 041
     Dates: start: 20091218, end: 20101116
  3. CALCIUM LEVOFOLINATE [Suspect]
     Route: 041
     Dates: start: 20101210, end: 20110304
  4. OXALIPLATIN [Suspect]
     Dosage: DOSAGE IS UNCERTAIN
     Route: 041
     Dates: start: 20091218, end: 20100917
  5. FLUOROURACIL [Suspect]
     Route: 040
     Dates: start: 20101210, end: 20110304
  6. FLUOROURACIL [Suspect]
     Route: 040
     Dates: start: 20091218, end: 20101101
  7. FLUOROURACIL [Suspect]
     Route: 040
     Dates: start: 20101210, end: 20110301
  8. OXINORM [Concomitant]
     Dosage: DOSE FORM: POWDERED MEDICINE
  9. FLUOROURACIL [Suspect]
     Route: 040
     Dates: start: 20091218, end: 20101116
  10. IRINOTECAN [Suspect]
     Route: 041
     Dates: start: 20101210, end: 20110304
  11. BEVACIZUMAB [Suspect]
     Indication: COLON CANCER METASTATIC
     Route: 041
     Dates: start: 20091218, end: 20101116
  12. BEVACIZUMAB [Suspect]
     Route: 041
     Dates: start: 20101210, end: 20110304
  13. LOXOPROFEN SODIUM [Concomitant]

REACTIONS (5)
  - INTERSTITIAL LUNG DISEASE [None]
  - NEUROPATHY PERIPHERAL [None]
  - BACK PAIN [None]
  - STOMATITIS [None]
  - CONSTIPATION [None]
